FAERS Safety Report 9697672 (Version 1)
Quarter: 2013Q4

REPORT INFORMATION
  Report Type: Spontaneous
  Country: US (occurrence: US)
  Receive Date: 20131120
  Receipt Date: 20131120
  Transmission Date: 20140711
  Serious: No
  Sender: FDA-Public Use
  Company Number: US-PFIZER INC-2013327880

PATIENT
  Age: 64 Year
  Sex: Male
  Weight: 73.47 kg

DRUGS (4)
  1. NORVASC [Suspect]
     Indication: HYPERTENSION
     Dosage: 10 MG, DAILY
  2. LIPITOR [Suspect]
     Indication: HYPERLIPIDAEMIA
     Dosage: 10 MG, DAILY
  3. NEURONTIN [Suspect]
     Indication: GASTROINTESTINAL PAIN
     Dosage: 300 MG, DAILY
  4. HYOSCYAMINE [Concomitant]
     Indication: IRRITABLE BOWEL SYNDROME
     Dosage: 0.375 MG, DAILY

REACTIONS (1)
  - Nasopharyngitis [Not Recovered/Not Resolved]
